FAERS Safety Report 9683388 (Version 1)
Quarter: 2013Q4

REPORT INFORMATION
  Report Type: Spontaneous
  Country: US (occurrence: US)
  Receive Date: 20131112
  Receipt Date: 20131112
  Transmission Date: 20140711
  Serious: No
  Sender: FDA-Public Use
  Company Number: US-PFIZER INC-2013320155

PATIENT
  Age: 54 Year
  Sex: Male

DRUGS (1)
  1. CAMPTOSAR [Suspect]
     Indication: PANCREATIC CARCINOMA
     Dosage: 280 MG EVERY TWO WEEKS
     Dates: start: 20130425

REACTIONS (3)
  - Off label use [Unknown]
  - Disease progression [Unknown]
  - Pancreatic carcinoma [Unknown]
